FAERS Safety Report 4979648-1 (Version None)
Quarter: 2006Q2

REPORT INFORMATION
  Report Type: 
  Country: None (occurrence: None)
  Receive Date: 20060418
  Receipt Date: 20060407
  Transmission Date: 20061013
  Serious: Yes (Life-Threatening)
  Sender: FDA-Public Use
  Company Number: GB200604001196

PATIENT
  Age: 49 Year
  Sex: Female

DRUGS (5)
  1. XIGRIS [Suspect]
     Dosage: 24 UG/KG/HR
     Dates: start: 20060405
  2. EPINEPHRINE [Concomitant]
  3. NORADRENALINE (NOREPINEPHRINE) [Concomitant]
  4. HYDROCORTISONE [Concomitant]
  5. ACETAMINOPHEN [Concomitant]

REACTIONS (1)
  - THROMBOCYTOPENIA [None]
